FAERS Safety Report 22996783 (Version 2)
Quarter: 2023Q4

REPORT INFORMATION
  Report Type: Spontaneous
  Country: US (occurrence: US)
  Receive Date: 20230928
  Receipt Date: 20231002
  Transmission Date: 20240110
  Serious: No
  Sender: FDA-Public Use
  Company Number: US-AMGEN-USASP2023170925

PATIENT

DRUGS (2)
  1. ENBREL [Suspect]
     Active Substance: ETANERCEPT
     Indication: Psoriatic arthropathy
     Dosage: UNK, EVERY FIVE DAYS
     Route: 065
  2. BEXTRA [Concomitant]
     Active Substance: VALDECOXIB
     Indication: Product used for unknown indication

REACTIONS (4)
  - Oropharyngeal pain [Unknown]
  - Feeling abnormal [Unknown]
  - Off label use [Unknown]
  - Headache [Unknown]
